FAERS Safety Report 4834641-4 (Version None)
Quarter: 2005Q4

REPORT INFORMATION
  Report Type: 
  Country: None (occurrence: None)
  Receive Date: 20051122
  Receipt Date: 20050602
  Transmission Date: 20060501
  Serious: No
  Sender: FDA-Public Use
  Company Number: US-BRISTOL-MYERS SQUIBB COMPANY-12991816

PATIENT
  Age: 69 Year
  Sex: Female
  Weight: 113 kg

DRUGS (5)
  1. PRAVACHOL [Suspect]
     Indication: BLOOD CHOLESTEROL INCREASED
     Dates: start: 20050324
  2. AMARYL [Concomitant]
  3. ZETIA [Concomitant]
  4. EFFEXOR [Concomitant]
  5. ASPIRIN [Concomitant]

REACTIONS (1)
  - MYALGIA [None]
